FAERS Safety Report 7387724-1 (Version None)
Quarter: 2011Q1

REPORT INFORMATION
  Report Type: 
  Country: None (occurrence: None)
  Receive Date: 20110331
  Receipt Date: 20110325
  Transmission Date: 20110831
  Serious: Yes (Death, Hospitalization)
  Sender: FDA-Public Use
  Company Number: AU-GENZYME-FLUD-1000973

PATIENT
  Age: 67 Year
  Sex: Male

DRUGS (18)
  1. CYCLOPHOSPHAMIDE [Suspect]
     Indication: B-CELL LYMPHOMA
     Dosage: UNK
     Route: 065
  2. RITUXIMAB [Suspect]
     Indication: B-CELL LYMPHOMA
     Dosage: UNK
     Route: 065
  3. RITUXIMAB [Suspect]
     Dosage: 375 MG/M2 EVERY 3 MONTHS
     Route: 065
  4. FLUDARA [Suspect]
     Dosage: UNK
     Route: 065
  5. CYCLOPHOSPHAMIDE [Suspect]
     Dosage: UNK
     Route: 065
  6. FLUDARA [Suspect]
     Dosage: UNK
     Route: 065
  7. FLUDARA [Suspect]
     Indication: B-CELL LYMPHOMA
     Dosage: UNK
     Route: 065
  8. RITUXIMAB [Suspect]
     Dosage: UNK
     Route: 065
  9. RITUXIMAB [Suspect]
     Dosage: 375 MG/M2 EVERY 3 MONTHS
     Route: 065
  10. RITUXIMAB [Suspect]
     Dosage: 375 MG/M2 EVERY 3 MONTHS
     Route: 065
  11. RITUXIMAB [Suspect]
     Dosage: 375 MG/M2 EVERY 3 MONTHS
     Route: 065
  12. FLUDARA [Suspect]
     Dosage: UNK
     Route: 065
  13. RITUXIMAB [Suspect]
     Dosage: UNK
     Route: 065
  14. RITUXIMAB [Suspect]
     Dosage: UNK
     Route: 065
  15. RITUXIMAB [Suspect]
     Dosage: 375 MG/M2 EVERY 3 MONTHS
     Route: 065
  16. CYCLOPHOSPHAMIDE [Suspect]
     Dosage: UNK
     Route: 065
  17. CYCLOPHOSPHAMIDE [Suspect]
     Dosage: UNK
     Route: 065
  18. RITUXIMAB [Suspect]
     Dosage: 375 MG/M2 EVERY 3 MONTHS
     Route: 065

REACTIONS (2)
  - ENTEROCOLITIS [None]
  - PNEUMONIA BACTERIAL [None]
